FAERS Safety Report 11871109 (Version 17)
Quarter: 2022Q4

REPORT INFORMATION
  Report Type: Report from Study
  Country: JP (occurrence: JP)
  Receive Date: 20151228
  Receipt Date: 20221025
  Transmission Date: 20230113
  Serious: Yes (Hospitalization, Other)
  Sender: FDA-Public Use
  Company Number: JP-VIIVHC-JP2015JPN180189AA

PATIENT

DRUGS (28)
  1. DOLUTEGRAVIR [Suspect]
     Active Substance: DOLUTEGRAVIR
     Indication: HIV infection
     Dosage: 50 MG, 1D
     Route: 048
     Dates: start: 20140617
  2. NORVIR [Suspect]
     Active Substance: RITONAVIR
     Indication: HIV infection
     Dosage: 200 MG, 1D
     Dates: start: 20110726, end: 20181001
  3. TRUVADA [Suspect]
     Active Substance: EMTRICITABINE\TENOFOVIR DISOPROXIL FUMARATE
     Indication: HIV infection
     Dosage: 1 DF, 1D
     Route: 048
     Dates: start: 20060905, end: 20170307
  4. PREZISTA [Suspect]
     Active Substance: DARUNAVIR ETHANOLATE
     Indication: HIV infection
     Dosage: 600 MG, BID
     Route: 048
     Dates: start: 20060905, end: 20181001
  5. ISENTRESS [Concomitant]
     Active Substance: RALTEGRAVIR POTASSIUM
     Indication: HIV infection
     Dosage: 800 MG, UNK
     Dates: end: 20140616
  6. DESCOVY [Concomitant]
     Active Substance: EMTRICITABINE\TENOFOVIR ALAFENAMIDE FUMARATE
     Indication: HIV infection
     Dosage: 1 DF, 1D
     Dates: start: 20170308, end: 20200212
  7. BORRAZA-G OINTMENT [Concomitant]
     Indication: Haemorrhoids
     Dosage: PROPER QUANTITY, QD
     Dates: start: 20140401
  8. CROSS EIGHT M [Concomitant]
     Active Substance: ANTIHEMOPHILIC FACTOR HUMAN
     Indication: Haemophilia
     Dosage: LESS THAN 1000 UT, QD
     Dates: start: 20140402
  9. CROSS EIGHT M [Concomitant]
     Active Substance: ANTIHEMOPHILIC FACTOR HUMAN
     Indication: Haemorrhoids
     Dosage: 1000 IU, QD
     Dates: end: 20150406
  10. CROSS EIGHT M [Concomitant]
     Active Substance: ANTIHEMOPHILIC FACTOR HUMAN
     Dosage: 2000 IU, 3 TIMES A WEEK
     Dates: start: 20150407, end: 20151011
  11. CROSS EIGHT M [Concomitant]
     Active Substance: ANTIHEMOPHILIC FACTOR HUMAN
     Dosage: 3000 IU, QD
     Dates: start: 20151012, end: 20151018
  12. CROSS EIGHT M [Concomitant]
     Active Substance: ANTIHEMOPHILIC FACTOR HUMAN
     Dosage: 2000 IU, QD
     Dates: start: 20151019, end: 20151025
  13. CROSS EIGHT M [Concomitant]
     Active Substance: ANTIHEMOPHILIC FACTOR HUMAN
     Dosage: 2000 IU, 3 TIMES A WEEK
     Dates: start: 20151026, end: 20151208
  14. CROSS EIGHT M [Concomitant]
     Active Substance: ANTIHEMOPHILIC FACTOR HUMAN
     Dosage: 2000 IU, QD
     Dates: start: 20151209, end: 20151215
  15. CROSS EIGHT M [Concomitant]
     Active Substance: ANTIHEMOPHILIC FACTOR HUMAN
     Dosage: 2000 IU, 3 TIMES A WEEK
     Dates: start: 20151216
  16. DIFLUCORTOLONE VALERATE\LIDOCAINE [Concomitant]
     Active Substance: DIFLUCORTOLONE VALERATE\LIDOCAINE
     Indication: Haemorrhoids
     Dosage: PROPER QUANTITY, BID
     Dates: start: 20140602, end: 20151213
  17. DIFLUCORTOLONE VALERATE\LIDOCAINE [Concomitant]
     Active Substance: DIFLUCORTOLONE VALERATE\LIDOCAINE
     Dosage: PROPER QUANTITY, 1 TO 3 TIMES A DAY
     Dates: start: 20151214, end: 20170410
  18. DIFLUCORTOLONE VALERATE\LIDOCAINE [Concomitant]
     Active Substance: DIFLUCORTOLONE VALERATE\LIDOCAINE
     Dosage: UNK
     Dates: start: 20200110
  19. DIETARY SUPPLEMENT\PROBIOTICS [Concomitant]
     Active Substance: DIETARY SUPPLEMENT\PROBIOTICS
     Indication: Abdominal distension
     Dosage: 1 DF, TID
     Dates: start: 20140402
  20. MAGNESIUM OXIDE [Concomitant]
     Active Substance: MAGNESIUM OXIDE
     Indication: Haemorrhoids
     Dosage: 330 MG, TID
     Dates: start: 20151210, end: 20160202
  21. HARVONI [Concomitant]
     Active Substance: LEDIPASVIR\SOFOSBUVIR
     Indication: Chronic hepatitis C
     Dosage: 1 DF, QD
     Dates: start: 20160412, end: 20160703
  22. HELMITIN S [Concomitant]
     Indication: Haemorrhoids
     Dosage: UNK
     Dates: start: 20170411
  23. HELMITIN S [Concomitant]
     Indication: Haemorrhoidal haemorrhage
  24. ESCHERICHIA COLI\HYDROCORTISONE [Concomitant]
     Active Substance: ESCHERICHIA COLI\HYDROCORTISONE
     Indication: Haemorrhoids
     Dosage: UNK
     Dates: start: 20170411
  25. ESCHERICHIA COLI\HYDROCORTISONE [Concomitant]
     Active Substance: ESCHERICHIA COLI\HYDROCORTISONE
     Indication: Haemorrhoidal haemorrhage
  26. PREZCOBIX [Concomitant]
     Active Substance: COBICISTAT\DARUNAVIR ETHANOLATE
     Indication: HIV infection
     Dosage: 1 DF, 1D
     Dates: start: 20181002, end: 20200212
  27. SYMTUZA [Concomitant]
     Active Substance: COBICISTAT\DARUNAVIR\EMTRICITABINE\TENOFOVIR ALAFENAMIDE
     Indication: HIV infection
     Dosage: 1 DF, 1D
     Dates: start: 20200213
  28. REPATHA [Concomitant]
     Active Substance: EVOLOCUMAB
     Dosage: UNK
     Dates: start: 20200930

REACTIONS (6)
  - Tachycardia [Recovered/Resolved]
  - Dyslipidaemia [Recovering/Resolving]
  - Oropharyngeal discomfort [Recovering/Resolving]
  - Herpes zoster [Recovered/Resolved]
  - Hyperuricaemia [Recovering/Resolving]
  - Neuropathy peripheral [Recovering/Resolving]

NARRATIVE: CASE EVENT DATE: 20141224
